FAERS Safety Report 8496021-2 (Version None)
Quarter: 2012Q3

REPORT INFORMATION
  Report Type: 
  Country: None (occurrence: None)
  Receive Date: 20120709
  Receipt Date: 20120702
  Transmission Date: 20120928
  Serious: Yes (Hospitalization)
  Sender: FDA-Public Use
  Company Number: DE-GILEAD-2012-0056611

PATIENT
  Sex: Female

DRUGS (15)
  1. REVATIO [Concomitant]
  2. CANDESARTAN CILEXETIL [Concomitant]
  3. AMBRISENTAN [Suspect]
     Indication: PULMONARY HYPERTENSION
     Dosage: 5 MG, QD
     Route: 048
     Dates: start: 20120501, end: 20120507
  4. MARCUMAR [Concomitant]
     Route: 065
  5. PANTOPRAZOLE [Concomitant]
  6. ONBREZ [Concomitant]
  7. CONCOR [Concomitant]
  8. LACTULOSE [Concomitant]
  9. SPIRIVA [Concomitant]
  10. OXYGEN [Concomitant]
  11. AQUAPHOR                           /00298701/ [Concomitant]
  12. MORPHIN                            /00036302/ [Concomitant]
  13. REKAWAN [Concomitant]
  14. TORSEMIDE [Concomitant]
     Dosage: 15MG PER DAY
     Route: 065
  15. EUTHYROX [Concomitant]

REACTIONS (17)
  - FOOD AVERSION [None]
  - BLOOD CREATININE INCREASED [None]
  - ACUTE PRERENAL FAILURE [None]
  - VOMITING [None]
  - HYPONATRAEMIA [None]
  - ERYTHEMA [None]
  - BUNDLE BRANCH BLOCK LEFT [None]
  - GENERAL PHYSICAL HEALTH DETERIORATION [None]
  - BENIGN GASTRIC NEOPLASM [None]
  - GASTRITIS [None]
  - QRS AXIS ABNORMAL [None]
  - DEHYDRATION [None]
  - ILL-DEFINED DISORDER [None]
  - HYPOKALAEMIA [None]
  - DRUG INTOLERANCE [None]
  - NAUSEA [None]
  - ATRIOVENTRICULAR BLOCK FIRST DEGREE [None]
